FAERS Safety Report 23867183 (Version 4)
Quarter: 2024Q3

REPORT INFORMATION
  Report Type: Spontaneous
  Country: GB (occurrence: GB)
  Receive Date: 20240517
  Receipt Date: 20240917
  Transmission Date: 20241016
  Serious: No
  Sender: PFIZER
  Company Number: GB-PFIZER INC-PV202400059965

PATIENT
  Age: 55 Year
  Sex: Female

DRUGS (1)
  1. GENOTROPIN [Suspect]
     Active Substance: SOMATROPIN
     Indication: Hypopituitarism
     Dosage: 0.6 MG, 1X/DAY
     Route: 058

REACTIONS (3)
  - Device use issue [Unknown]
  - Incorrect dose administered by device [Unknown]
  - Device mechanical issue [Unknown]
